FAERS Safety Report 7810134-7 (Version None)
Quarter: 2011Q4

REPORT INFORMATION
  Report Type: 
  Country: None (occurrence: None)
  Receive Date: 20111012
  Receipt Date: 20111006
  Transmission Date: 20120403
  Serious: Yes (Other)
  Sender: FDA-Public Use
  Company Number: US-PFIZER INC-2011239323

PATIENT
  Sex: Female
  Weight: 53.515 kg

DRUGS (5)
  1. NEXIUM [Concomitant]
     Dosage: UNK
  2. CHANTIX [Interacting]
     Dosage: UNK
     Route: 048
     Dates: start: 20110919
  3. CHANTIX [Suspect]
     Indication: SMOKING CESSATION THERAPY
     Dosage: 0.5 MG, 1X/DAY
     Route: 048
     Dates: start: 20090101, end: 20090101
  4. SINGULAIR [Concomitant]
     Dosage: UNK
  5. XANAX [Interacting]

REACTIONS (4)
  - ASTHMA [None]
  - DRUG INTERACTION [None]
  - ANXIETY [None]
  - TONGUE OEDEMA [None]
